FAERS Safety Report 25979133 (Version 1)
Quarter: 2025Q4

REPORT INFORMATION
  Report Type: Other
  Country: EU (occurrence: EU)
  Receive Date: 20251030
  Receipt Date: 20251030
  Transmission Date: 20260117
  Serious: Yes (Other)
  Sender: DUCHESNAY
  Company Number: None

PATIENT

DRUGS (2)
  1. DOXYLAMINE SUCCINATE\PYRIDOXINE HYDROCHLORIDE [Suspect]
     Active Substance: DOXYLAMINE SUCCINATE\PYRIDOXINE HYDROCHLORIDE
     Indication: Morning sickness
     Dosage: 1 TABLET AT NIGHT UNTIL THE BABY IS BORN
     Dates: start: 20250311
  2. ONDANSETRON HYDROCHLORIDE [Suspect]
     Active Substance: ONDANSETRON HYDROCHLORIDE
     Indication: Morning sickness
     Dosage: 1 TABLET IN THE MORNING
     Dates: start: 20250409, end: 20250606

REACTIONS (2)
  - Impaired quality of life [Recovered/Resolved]
  - Headache [Recovered/Resolved]

NARRATIVE: CASE EVENT DATE: 20250411
